FAERS Safety Report 15833011 (Version 1)
Quarter: 2019Q1

REPORT INFORMATION
  Report Type: Spontaneous
  Country: US (occurrence: US)
  Receive Date: 20190116
  Receipt Date: 20190116
  Transmission Date: 20190417
  Serious: Yes (Death, Hospitalization, Other)
  Sender: FDA-Public Use
  Company Number: US-JNJFOC-20190113955

PATIENT
  Age: 70 Year
  Sex: Male
  Weight: 63.5 kg

DRUGS (4)
  1. PENTASA [Concomitant]
     Active Substance: MESALAMINE
     Route: 065
  2. REMICADE [Suspect]
     Active Substance: INFLIXIMAB
     Indication: CROHN^S DISEASE
     Route: 042
     Dates: end: 2018
  3. NORCO [Concomitant]
     Active Substance: ACETAMINOPHEN\HYDROCODONE BITARTRATE
     Route: 065
  4. LOMOTIL [Concomitant]
     Active Substance: ATROPINE SULFATE\DIPHENOXYLATE HYDROCHLORIDE
     Route: 065

REACTIONS (8)
  - Lung disorder [Fatal]
  - Fall [Recovered/Resolved]
  - Blood sodium decreased [Unknown]
  - Hypophagia [Unknown]
  - Hip fracture [Recovered/Resolved]
  - Pain [Unknown]
  - Suicide attempt [Unknown]
  - Dementia [Unknown]

NARRATIVE: CASE EVENT DATE: 201803
